FAERS Safety Report 13769186 (Version 2)
Quarter: 2017Q3

REPORT INFORMATION
  Report Type: Spontaneous
  Country: JP (occurrence: JP)
  Receive Date: 20170719
  Receipt Date: 20170728
  Transmission Date: 20171127
  Serious: Yes (Death, Life-Threatening)
  Sender: FDA-Public Use
  Company Number: JP-MALLINCKRODT-T201702728

PATIENT
  Age: 58 Year
  Sex: Male

DRUGS (21)
  1. MORPHINE HYDROCHLORIDE [Concomitant]
     Active Substance: MORPHINE HYDROCHLORIDE
     Dosage: UNK
     Route: 051
     Dates: start: 20160225, end: 20160225
  2. ACETAMINOPHEN. [Concomitant]
     Active Substance: ACETAMINOPHEN
     Indication: CANCER PAIN
     Dosage: UNK
     Route: 048
     Dates: start: 20160215, end: 20160331
  3. METHADONE [Suspect]
     Active Substance: METHADONE HYDROCHLORIDE
     Dosage: 20 MG, UNK
     Route: 048
     Dates: start: 20160223
  4. MORPHINE HYDROCHLORIDE [Concomitant]
     Active Substance: MORPHINE HYDROCHLORIDE
     Dosage: UNK
  5. DICLOFENAC SODIUM. [Concomitant]
     Active Substance: DICLOFENAC SODIUM
     Indication: CANCER PAIN
     Dosage: 75 MG
     Route: 048
     Dates: start: 20160215, end: 20160225
  6. MORPHINE HYDROCHLORIDE [Concomitant]
     Active Substance: MORPHINE HYDROCHLORIDE
     Dosage: 768 MG
     Route: 051
     Dates: start: 20160222, end: 20160222
  7. ACETAMINOPHEN. [Concomitant]
     Active Substance: ACETAMINOPHEN
     Dosage: UNK
     Route: 051
     Dates: start: 20160215, end: 20160331
  8. ESOMEPRAZOLE MAGNESIUM. [Concomitant]
     Active Substance: ESOMEPRAZOLE MAGNESIUM
     Indication: PRODUCT USED FOR UNKNOWN INDICATION
     Dosage: 20 MG
     Route: 048
     Dates: start: 20160215, end: 20160225
  9. MORPHINE HYDROCHLORIDE [Concomitant]
     Active Substance: MORPHINE HYDROCHLORIDE
     Dosage: 288 MG
     Route: 051
     Dates: start: 20160224, end: 20160224
  10. MORPHINE HYDROCHLORIDE [Concomitant]
     Active Substance: MORPHINE HYDROCHLORIDE
     Indication: PRODUCT USED FOR UNKNOWN INDICATION
     Dosage: 960 MG
     Route: 051
     Dates: start: 20160221, end: 20160221
  11. BETAMETHASONE. [Concomitant]
     Active Substance: BETAMETHASONE
     Dosage: UNK
     Route: 051
     Dates: start: 20160215, end: 20160331
  12. MORPHINE HYDROCHLORIDE [Concomitant]
     Active Substance: MORPHINE HYDROCHLORIDE
     Dosage: 672 MG
     Route: 051
     Dates: start: 20160223, end: 20160223
  13. FENTOS [Concomitant]
     Active Substance: FENTANYL
     Indication: CANCER PAIN
     Dosage: 8 MG
     Dates: start: 20160215, end: 20160331
  14. LACTEC [Concomitant]
     Active Substance: CALCIUM CHLORIDE ANHYDROUS\POTASSIUM CHLORIDE\SODIUM CHLORIDE\SODIUM LACTATE
     Indication: PRODUCT USED FOR UNKNOWN INDICATION
     Dosage: 1000 MG
     Route: 051
     Dates: start: 20160225, end: 20160226
  15. METHADONE [Suspect]
     Active Substance: METHADONE HYDROCHLORIDE
     Dosage: 10 MG, UNK
     Route: 048
     Dates: start: 20160222
  16. METHADONE [Suspect]
     Active Substance: METHADONE HYDROCHLORIDE
     Dosage: 30 MG, UNK
     Route: 048
     Dates: start: 20160224, end: 20160225
  17. METHADONE [Suspect]
     Active Substance: METHADONE HYDROCHLORIDE
     Dosage: 10 MG, UNK
     Route: 048
     Dates: start: 20160301, end: 20160307
  18. METHADONE [Suspect]
     Active Substance: METHADONE HYDROCHLORIDE
     Dosage: 15 MG, UNK
     Route: 048
     Dates: start: 20160308, end: 20160330
  19. MORPHINE HYDROCHLORIDE [Concomitant]
     Active Substance: MORPHINE HYDROCHLORIDE
     Dosage: 672 MG
     Route: 051
     Dates: start: 20160301, end: 20160301
  20. PREGABALIN. [Concomitant]
     Active Substance: PREGABALIN
     Indication: CANCER PAIN
     Dosage: 450 MG
     Route: 048
     Dates: start: 20160215, end: 20160225
  21. BETAMETHASONE. [Concomitant]
     Active Substance: BETAMETHASONE
     Indication: CANCER PAIN
     Dosage: UNK
     Route: 048
     Dates: start: 20160215, end: 20160331

REACTIONS (7)
  - Somnolence [Recovering/Resolving]
  - Delirium [Recovering/Resolving]
  - Ventricular tachycardia [Recovered/Resolved]
  - Myoclonus [Recovered/Resolved]
  - Electrocardiogram QT prolonged [Recovered/Resolved]
  - Shock [Recovered/Resolved]
  - Bladder cancer [Fatal]

NARRATIVE: CASE EVENT DATE: 20160223
